FAERS Safety Report 5313382-3 (Version None)
Quarter: 2007Q2

REPORT INFORMATION
  Report Type: 
  Country: None (occurrence: None)
  Receive Date: 20070426
  Receipt Date: 20070426
  Transmission Date: 20071010
  Serious: Yes (Life-Threatening, Hospitalization)
  Sender: FDA-Public Use
  Company Number: None

PATIENT
  Age: 81 Year
  Sex: Male

DRUGS (10)
  1. LEVOFLOXACIN [Suspect]
     Indication: PNEUMONIA
     Dosage: 250 MG DAILY IV
     Route: 042
     Dates: start: 20061219, end: 20061230
  2. ALBUTEROL [Concomitant]
  3. IPRATROPIUM BROMIDE [Concomitant]
  4. ASCORBIC ACID [Concomitant]
  5. ATORVASTATIN CALCIUM [Concomitant]
  6. DIGOXIN [Concomitant]
  7. LANOSPRAZOLE [Concomitant]
  8. METOPROLOL SUCCINATE [Concomitant]
  9. VANCOMYCIN [Concomitant]
  10. LEVOFLOXACIN [Concomitant]

REACTIONS (6)
  - CONDITION AGGRAVATED [None]
  - ELECTROCARDIOGRAM QT PROLONGED [None]
  - RENAL FAILURE CHRONIC [None]
  - TORSADE DE POINTES [None]
  - VENTRICULAR EXTRASYSTOLES [None]
  - VENTRICULAR FIBRILLATION [None]
